FAERS Safety Report 13563318 (Version 1)
Quarter: 2017Q2

REPORT INFORMATION
  Report Type: Spontaneous
  Country: US (occurrence: US)
  Receive Date: 20170519
  Receipt Date: 20170519
  Transmission Date: 20170830
  Serious: Yes (Other)
  Sender: FDA-Public Use
  Company Number: US-ASTRAZENECA-2017SE51360

PATIENT
  Age: 27539 Day
  Sex: Female
  Weight: 81.6 kg

DRUGS (5)
  1. GABAPENTIN. [Suspect]
     Active Substance: GABAPENTIN
     Indication: SCIATICA
     Route: 048
  2. BYETTA [Suspect]
     Active Substance: EXENATIDE
     Indication: TYPE 2 DIABETES MELLITUS
     Route: 058
  3. METFORMIN [Concomitant]
     Active Substance: METFORMIN HYDROCHLORIDE
     Indication: DIABETES MELLITUS
     Route: 048
  4. VICTOZA [Suspect]
     Active Substance: LIRAGLUTIDE
     Route: 065
  5. LANTUS [Concomitant]
     Active Substance: INSULIN GLARGINE
     Indication: DIABETES MELLITUS
     Route: 058

REACTIONS (8)
  - Device malfunction [Unknown]
  - Peripheral swelling [Unknown]
  - Drug dose omission [Unknown]
  - Sciatica [Unknown]
  - Cerebrovascular accident [Unknown]
  - Palpitations [Unknown]
  - Transient ischaemic attack [Unknown]
  - Somnolence [Unknown]

NARRATIVE: CASE EVENT DATE: 20170504
